FAERS Safety Report 7355443-3 (Version None)
Quarter: 2011Q1

REPORT INFORMATION
  Report Type: 
  Country: None (occurrence: None)
  Receive Date: 20110316
  Receipt Date: 20110310
  Transmission Date: 20110831
  Serious: Yes (Hospitalization, Other)
  Sender: FDA-Public Use
  Company Number: RO-ABBOTT-11P-135-0695056-00

PATIENT
  Sex: Male
  Weight: 70 kg

DRUGS (1)
  1. HUMIRA [Suspect]
     Indication: PRODUCT USED FOR UNKNOWN INDICATION
     Route: 058
     Dates: start: 20100920, end: 20101118

REACTIONS (4)
  - NODULE [None]
  - PYREXIA [None]
  - LEUKAEMIA [None]
  - EXTRAPULMONARY TUBERCULOSIS [None]
